FAERS Safety Report 9867476 (Version 3)
Quarter: 2014Q2

REPORT INFORMATION
  Report Type: Spontaneous
  Country: FR (occurrence: FR)
  Receive Date: 20140204
  Receipt Date: 20140520
  Transmission Date: 20141212
  Serious: Yes (Other)
  Sender: FDA-Public Use
  Company Number: FR-PFIZER INC-2013362151

PATIENT
  Age: 87 Year
  Sex: Female

DRUGS (3)
  1. AROMASINE [Suspect]
     Indication: BREAST CANCER
     Dosage: 1 DF, 1X/DAY
     Dates: start: 20130312, end: 201312
  2. CACIT D3 [Concomitant]
  3. STEROGYL [Concomitant]

REACTIONS (12)
  - Vertigo [Recovered/Resolved]
  - Fall [Unknown]
  - Wrist fracture [Unknown]
  - Gait disturbance [Recovered/Resolved]
  - Hot flush [Recovered/Resolved]
  - Peripheral swelling [Unknown]
  - Vomiting [Recovered/Resolved]
  - Diarrhoea [Recovered/Resolved]
  - Blood calcium decreased [Unknown]
  - Memory impairment [Not Recovered/Not Resolved]
  - Muscle disorder [Unknown]
  - Drug intolerance [Unknown]
